FAERS Safety Report 6389464-4 (Version None)
Quarter: 2009Q4

REPORT INFORMATION
  Report Type: 
  Country: None (occurrence: None)
  Receive Date: 20091006
  Receipt Date: 20090924
  Transmission Date: 20100525
  Serious: Yes (Hospitalization)
  Sender: FDA-Public Use
  Company Number: US-ASTRAZENECA-2009SE15316

PATIENT
  Age: 82 Year
  Sex: Female
  Weight: 77.1 kg

DRUGS (17)
  1. PULMICORT RESPULES [Suspect]
     Indication: EMPHYSEMA
     Route: 055
     Dates: start: 20050101, end: 20090401
  2. PULMICORT RESPULES [Suspect]
     Indication: ASTHMA
     Route: 055
     Dates: start: 20050101, end: 20090401
  3. PULMICORT RESPULES [Suspect]
     Route: 055
     Dates: start: 20090401
  4. PULMICORT RESPULES [Suspect]
     Route: 055
     Dates: start: 20090401
  5. ALBUTEROL [Concomitant]
     Indication: EMPHYSEMA
     Route: 055
  6. ALBUTEROL [Concomitant]
     Indication: ASTHMA
     Route: 055
  7. MULTI-VITAMINS [Concomitant]
     Route: 048
  8. SEREVENT [Concomitant]
     Indication: EMPHYSEMA
     Route: 055
  9. SEREVENT [Concomitant]
     Indication: ASTHMA
     Route: 055
  10. PREDNISONE TAB [Concomitant]
     Indication: EMPHYSEMA
     Route: 048
  11. PREDNISONE TAB [Concomitant]
     Indication: ASTHMA
     Route: 048
  12. CLARITIN [Concomitant]
     Indication: HYPERSENSITIVITY
     Route: 048
  13. SPIRIVA [Concomitant]
     Indication: EMPHYSEMA
     Route: 055
  14. SPIRIVA [Concomitant]
     Indication: ASTHMA
     Route: 055
  15. ACTONEL [Concomitant]
     Route: 048
  16. CALCIUM CITRATE [Concomitant]
     Route: 048
  17. TYLENOL (CAPLET) [Concomitant]
     Indication: ARTHRITIS
     Route: 048

REACTIONS (4)
  - INJURY [None]
  - MUSCLE SPASMS [None]
  - PNEUMONIA [None]
  - RASH MACULAR [None]
